FAERS Safety Report 17180989 (Version 2)
Quarter: 2020Q4

REPORT INFORMATION
  Report Type: Spontaneous
  Country: US (occurrence: US)
  Receive Date: 20191219
  Receipt Date: 20201030
  Transmission Date: 20210113
  Serious: Yes (Other)
  Sender: FDA-Public Use
  Company Number: US-SA-2019SA349635

PATIENT

DRUGS (1)
  1. ZANTAC [Suspect]
     Active Substance: RANITIDINE HYDROCHLORIDE
     Indication: GASTROOESOPHAGEAL REFLUX DISEASE
     Dosage: UNK UNK, UNK
     Route: 065
     Dates: start: 200606, end: 201506

REACTIONS (6)
  - Pain [Unknown]
  - Anhedonia [Unknown]
  - Gastric cancer [Unknown]
  - Oesophageal carcinoma [Unknown]
  - Lung neoplasm malignant [Unknown]
  - Anxiety [Unknown]
